FAERS Safety Report 9678020 (Version 1)
Quarter: 2013Q4

REPORT INFORMATION
  Report Type: Spontaneous
  Country: GB (occurrence: GB)
  Receive Date: 20131108
  Receipt Date: 20131108
  Transmission Date: 20140711
  Serious: Yes (Other)
  Sender: FDA-Public Use
  Company Number: GB-UCBSA-102410

PATIENT
  Age: 12 Year
  Sex: Male

DRUGS (1)
  1. EQUASYM XL [Suspect]
     Indication: ATTENTION DEFICIT/HYPERACTIVITY DISORDER
     Dosage: 30 MG
     Route: 048
     Dates: start: 201211

REACTIONS (1)
  - Blood bilirubin increased [Unknown]
